FAERS Safety Report 10047031 (Version 1)
Quarter: 2014Q1

REPORT INFORMATION
  Report Type: Spontaneous
  Country: US (occurrence: None)
  Receive Date: 20140328
  Receipt Date: 20140328
  Transmission Date: 20141002
  Serious: Yes (Hospitalization)
  Sender: FDA-Public Use
  Company Number: None

PATIENT
  Age: 72 Year
  Sex: Female
  Weight: 92.08 kg

DRUGS (13)
  1. DECITABINE [Suspect]
     Indication: ACUTE MYELOID LEUKAEMIA
     Dosage: 20MG/M2;QDX5;28DAYCYCLES
     Dates: start: 20130802
  2. ACYCLOVIR [Concomitant]
  3. CIPROFLOXACIN [Concomitant]
  4. CITALOPRAM HYDROBROMIDE [Concomitant]
  5. FLUCONAZOLE [Concomitant]
  6. LISINOPRIL [Concomitant]
  7. NEXIUM [Concomitant]
  8. ODANSETRON [Concomitant]
  9. OXYCONTIN [Concomitant]
  10. POLYETHYLENE GLYCOL [Concomitant]
  11. SENNA GLYCOL [Concomitant]
  12. SUCRALAFATE [Concomitant]
  13. WARFARIN SODIUM [Concomitant]

REACTIONS (2)
  - Escherichia urinary tract infection [None]
  - Pathogen resistance [None]
